FAERS Safety Report 9058639 (Version 2)
Quarter: 2013Q3

REPORT INFORMATION
  Report Type: Report from Study
  Country: JP (occurrence: JP)
  Receive Date: 20130211
  Receipt Date: 20130911
  Transmission Date: 20140515
  Serious: Yes (Other)
  Sender: FDA-Public Use
  Company Number: JP-VERTEX PHARMACEUTICALS INC.-2013-001771

PATIENT
  Age: 51 Year
  Sex: Male

DRUGS (42)
  1. VX-950 (TELAPREVIR) [Suspect]
     Indication: CHRONIC HEPATITIS C
     Dosage: 2250 MG, QD
     Route: 048
     Dates: start: 20120224, end: 20120301
  2. VX-950 (TELAPREVIR) [Suspect]
     Dosage: 750 MG, QD
     Route: 048
     Dates: start: 20120305, end: 20120322
  3. VX-950 (TELAPREVIR) [Suspect]
     Dosage: 1500 MG, QD
     Route: 048
     Dates: start: 20120323, end: 20120412
  4. VX-950 (TELAPREVIR) [Suspect]
     Dosage: 1500 MG, QD
     Route: 048
     Dates: start: 20120425, end: 20120517
  5. VX-950 (TELAPREVIR) [Suspect]
     Dosage: 1500 MG, QD
     Route: 048
     Dates: start: 20120601, end: 20120607
  6. REBETOL [Concomitant]
     Dosage: 600 MG, QD
     Route: 048
     Dates: start: 20120224, end: 20120301
  7. REBETOL [Concomitant]
     Dosage: 200 MG, QD
     Route: 048
     Dates: start: 20120305, end: 20120412
  8. REBETOL [Concomitant]
     Dosage: 200 MG, QD
     Route: 048
     Dates: start: 20120425, end: 20120501
  9. REBETOL [Concomitant]
     Dosage: 400 MG, QD
     Route: 048
     Dates: start: 20120502, end: 20120510
  10. REBETOL [Concomitant]
     Dosage: 600 MG, QD
     Route: 048
     Dates: start: 20120511, end: 20120517
  11. REBETOL [Concomitant]
     Dosage: 400 MG, QD
     Route: 048
     Dates: start: 20120601, end: 20120712
  12. REBETOL [Concomitant]
     Dosage: 400 MG, QD
     Route: 048
     Dates: start: 20120720, end: 20120809
  13. PEGINTRON [Concomitant]
     Dosage: 1.2 ?G/KG, QW
     Route: 058
     Dates: start: 20120224, end: 20120301
  14. PEGINTRON [Concomitant]
     Dosage: 0.4 ?G/KG, QW
     Route: 058
     Dates: start: 20120309, end: 20120329
  15. PEGINTRON [Concomitant]
     Dosage: 0.6 ?G/KG, QW
     Route: 058
     Dates: start: 20120330, end: 20120330
  16. PEGINTRON [Concomitant]
     Dosage: 0.4 ?G/KG, QW
     Route: 058
     Dates: start: 20120406, end: 20120406
  17. PEGINTRON [Concomitant]
     Dosage: 0.6 ?G/KG, QW
     Route: 058
     Dates: start: 20120425, end: 20120425
  18. PEGINTRON [Concomitant]
     Dosage: 0.7 ?G/KG, QW
     Route: 058
     Dates: start: 20120502, end: 20120502
  19. PEGINTRON [Concomitant]
     Dosage: 0.8 ?G/KG, QW
     Route: 058
     Dates: start: 20120511, end: 20120511
  20. PEGINTRON [Concomitant]
     Dosage: 0.74 ?G/KG, QW
     Route: 058
     Dates: start: 20120601, end: 20120706
  21. PEGINTRON [Concomitant]
     Dosage: 0.74 ?G/KG, QW
     Route: 058
     Dates: start: 20120720, end: 20120803
  22. MYSLEE [Concomitant]
     Dosage: 10 MG, QD
     Route: 048
  23. SILECE [Concomitant]
     Dosage: 2 MG, QD
     Route: 048
  24. HIRNAMIN [Concomitant]
     Dosage: 40 MG, QD
     Route: 048
  25. AMOBAN [Concomitant]
     Dosage: 7.5 MG, QD
     Route: 048
  26. MERISLON [Concomitant]
     Dosage: 36 MG, QD
     Route: 048
  27. PROMAC [Concomitant]
     Dosage: 150 MG, QD
     Route: 048
     Dates: end: 20120305
  28. TENORMIN [Concomitant]
     Dosage: 25 MG, QD
     Route: 048
  29. BIOFERMIN [Concomitant]
     Dosage: 3 G, QD
     Route: 048
     Dates: end: 20120305
  30. CEREKINON [Concomitant]
     Dosage: 300 MG, QD
     Route: 048
     Dates: end: 20120305
  31. GASCON [Concomitant]
     Dosage: 240 MG, QD
     Route: 048
     Dates: end: 20120305
  32. METGLUCO [Concomitant]
     Dosage: 2250 MG, QD
     Route: 048
  33. PREDONINE [Concomitant]
     Dosage: 5 MG, QD
     Route: 048
  34. VOLTAREN [Concomitant]
     Dosage: 75 MG, QD
     Route: 048
  35. MYONAL [Concomitant]
     Dosage: 100 MG, QD
     Route: 048
     Dates: end: 20120305
  36. TAKEPRON [Concomitant]
     Dosage: 15 MG, QD
     Route: 048
  37. TSUMURA SHAKUYAKU KANZO-YO-EXTRACT GRANULES FOR ETHICAL USE [Concomitant]
     Dosage: 2 DF, QD
     Route: 048
     Dates: end: 20120307
  38. MAGMITT [Concomitant]
     Dosage: 990 MG, QD
     Route: 048
     Dates: end: 20120305
  39. METHYCOBAL [Concomitant]
     Dosage: 1500 MG, QD
     Route: 048
  40. JUVELA N [Concomitant]
     Dosage: 300 MG, QD
     Route: 058
     Dates: end: 20120305
  41. URSO [Concomitant]
     Dosage: 300 MG, QD
     Route: 048
     Dates: end: 20120310
  42. VICTOZA [Concomitant]
     Dosage: 0.9 MG, QD
     Route: 058

REACTIONS (1)
  - Renal disorder [Recovered/Resolved]
